FAERS Safety Report 8435618-2 (Version None)
Quarter: 2012Q2

REPORT INFORMATION
  Report Type: 
  Country: None (occurrence: None)
  Receive Date: 20120614
  Receipt Date: 20120605
  Transmission Date: 20120825
  Serious: Yes (Hospitalization)
  Sender: FDA-Public Use
  Company Number: US-ASTRAZENECA-2012SE04937

PATIENT
  Age: 57 Year
  Sex: Female

DRUGS (4)
  1. OTHER MEDICATIONS [Interacting]
     Route: 065
  2. SPIRIVA [Suspect]
     Route: 065
  3. SYMBICORT [Interacting]
     Dosage: UNKNOWN
     Route: 055
  4. DULERA [Concomitant]

REACTIONS (6)
  - WHEEZING [None]
  - ASTHMA [None]
  - DYSPNOEA [None]
  - HEART RATE INCREASED [None]
  - DRUG INEFFECTIVE [None]
  - DRUG INTERACTION [None]
